FAERS Safety Report 15826160 (Version 1)
Quarter: 2019Q1

REPORT INFORMATION
  Report Type: Spontaneous
  Country: US (occurrence: US)
  Receive Date: 20190115
  Receipt Date: 20190115
  Transmission Date: 20190417
  Serious: Yes (Life-Threatening, Hospitalization)
  Sender: FDA-Public Use
  Company Number: None

PATIENT
  Age: 62 Year
  Sex: Female
  Weight: 105.7 kg

DRUGS (17)
  1. CEFAZOLIN [Concomitant]
     Active Substance: CEFAZOLIN
     Dates: start: 20190113, end: 20190114
  2. DULOXETINE. [Concomitant]
     Active Substance: DULOXETINE
     Dates: start: 20190109
  3. HEPARIN [Concomitant]
     Active Substance: HEPARIN SODIUM
     Dates: start: 20190110
  4. FENTANYL. [Concomitant]
     Active Substance: FENTANYL
     Dates: start: 20190109
  5. POLYETHYLENE GLYCOL [Concomitant]
     Active Substance: POLYETHYLENE GLYCOLS
     Dates: start: 20190108
  6. PROPOFOL. [Concomitant]
     Active Substance: PROPOFOL
     Dates: start: 20190113
  7. LEVOTHYROXINE. [Concomitant]
     Active Substance: LEVOTHYROXINE
     Dates: start: 20190109
  8. ONDANSETRON [Concomitant]
     Active Substance: ONDANSETRON
     Dates: start: 20190109
  9. FUROSEMIDE. [Concomitant]
     Active Substance: FUROSEMIDE
     Dates: start: 20190109
  10. RANITIDINE. [Concomitant]
     Active Substance: RANITIDINE
     Dates: start: 20190108
  11. PREGABALIN. [Concomitant]
     Active Substance: PREGABALIN
     Dates: start: 20190108
  12. ACETAMINOPHEN. [Concomitant]
     Active Substance: ACETAMINOPHEN
     Dates: start: 20190108, end: 20190114
  13. OMEPRAZOLE. [Concomitant]
     Active Substance: OMEPRAZOLE
     Dates: start: 20190109
  14. ROSUVASTATIN. [Concomitant]
     Active Substance: ROSUVASTATIN
     Dates: start: 20190108
  15. INVOKANA [Suspect]
     Active Substance: CANAGLIFLOZIN
     Indication: TYPE 2 DIABETES MELLITUS
     Route: 048
     Dates: start: 20170427, end: 20190108
  16. HYDROMORPHONE [Concomitant]
     Active Substance: HYDROMORPHONE
     Dates: start: 20190109
  17. LIDOCAINE 5% PATCH [Concomitant]
     Active Substance: LIDOCAINE
     Dates: start: 20190111

REACTIONS (5)
  - Road traffic accident [None]
  - Humerus fracture [None]
  - Euglycaemic diabetic ketoacidosis [None]
  - Femur fracture [None]
  - Confusional state [None]

NARRATIVE: CASE EVENT DATE: 20190114
